FAERS Safety Report 4711702-1 (Version None)
Quarter: 2005Q3

REPORT INFORMATION
  Report Type: 
  Country: None (occurrence: None)
  Receive Date: 20050712
  Receipt Date: 20050207
  Transmission Date: 20060218
  Serious: Yes (Other)
  Sender: FDA-Public Use
  Company Number: PHEH2005US01773

PATIENT
  Age: 44 Year
  Sex: Female

DRUGS (3)
  1. ZOMETA [Suspect]
     Indication: METASTASES TO BONE
  2. DOXORUBICIN [Concomitant]
  3. BLEOMYCIN [Concomitant]

REACTIONS (3)
  - INFECTION [None]
  - OSTEONECROSIS [None]
  - SEQUESTRECTOMY [None]
